FAERS Safety Report 8575686-0 (Version None)
Quarter: 2012Q3

REPORT INFORMATION
  Report Type: 
  Country: None (occurrence: None)
  Receive Date: 20120807
  Receipt Date: 20120803
  Transmission Date: 20120928
  Serious: Yes (Death, Hospitalization, Other)
  Sender: FDA-Public Use
  Company Number: PHEH2009US13622

PATIENT
  Sex: Female
  Weight: 68.027 kg

DRUGS (23)
  1. XANAX [Concomitant]
  2. CHEMOTHERAPEUTICS [Concomitant]
  3. ZOMETA [Suspect]
     Dosage: UNK UKN, EVERY 4 WEEKS
     Route: 042
     Dates: start: 20060401, end: 20070601
  4. RESTORIL [Concomitant]
  5. OXYCODONE HCL [Concomitant]
  6. HUMIRA [Concomitant]
  7. NEUPOGEN [Concomitant]
  8. ACYCLOVIR [Concomitant]
  9. COUMADIN [Concomitant]
  10. PERCOCET [Concomitant]
  11. FENTANYL [Concomitant]
  12. DECADRON [Concomitant]
  13. ATIVAN [Concomitant]
     Route: 042
  14. FASLODEX [Concomitant]
  15. FEMARA [Concomitant]
  16. WELLBUTRIN [Concomitant]
  17. RADIATION [Concomitant]
  18. COMPAZINE [Concomitant]
  19. TAXOTERE [Concomitant]
     Dosage: 120 MG, UNK
  20. ZOFRAN [Concomitant]
  21. ABRAXANE [Suspect]
     Dosage: 170 MG, UNK
  22. AROMASIN [Concomitant]
     Dosage: 1 DF, QD
     Route: 048
  23. NEULASTA [Concomitant]

REACTIONS (49)
  - ORAL DISORDER [None]
  - LEUKOPENIA [None]
  - INSOMNIA [None]
  - BACK PAIN [None]
  - DYSPHAGIA [None]
  - HEPATIC LESION [None]
  - DECREASED APPETITE [None]
  - DYSGEUSIA [None]
  - OSTEONECROSIS OF JAW [None]
  - MULTIPLE INJURIES [None]
  - PYREXIA [None]
  - FATIGUE [None]
  - CORONARY ARTERY DISEASE [None]
  - CARDIOMYOPATHY [None]
  - LOSS OF CONSCIOUSNESS [None]
  - VULVOVAGINAL MYCOTIC INFECTION [None]
  - NECK PAIN [None]
  - BONE LESION [None]
  - OCULAR ICTERUS [None]
  - CARDIAC FAILURE [None]
  - UNEVALUABLE EVENT [None]
  - ANXIETY [None]
  - CHILLS [None]
  - AGRANULOCYTOSIS [None]
  - IMMUNOSUPPRESSION [None]
  - JAUNDICE [None]
  - PAIN [None]
  - ANHEDONIA [None]
  - ASTHENIA [None]
  - SIMPLEX VIRUS TEST POSITIVE [None]
  - NASAL CONGESTION [None]
  - GINGIVAL ABSCESS [None]
  - ABDOMINAL DISCOMFORT [None]
  - NEUTROPENIA [None]
  - PLEURAL EFFUSION [None]
  - MYALGIA [None]
  - BONE LOSS [None]
  - CYST [None]
  - OSTEOMYELITIS [None]
  - DYSPHONIA [None]
  - VOCAL CORD POLYP [None]
  - RENAL CYST [None]
  - ABDOMINAL PAIN [None]
  - INTERVERTEBRAL DISC DEGENERATION [None]
  - HAEMORRHOIDAL HAEMORRHAGE [None]
  - DYSPEPSIA [None]
  - RASH [None]
  - LEFT VENTRICULAR DYSFUNCTION [None]
  - SPINAL OSTEOARTHRITIS [None]
